FAERS Safety Report 4357062-X (Version None)
Quarter: 2004Q2

REPORT INFORMATION
  Report Type: 
  Country: None (occurrence: None)
  Receive Date: 20040507
  Receipt Date: 20040426
  Transmission Date: 20050107
  Serious: Yes (Hospitalization)
  Sender: FDA-Public Use
  Company Number: US-JNJFOC-20040405822

PATIENT
  Age: 61 Year
  Sex: Female
  Weight: 74.8435 kg

DRUGS (12)
  1. INFLIXIMAB (INFLIXIMAB, RECOMBINANT) LYOPHILIZED POWDER [Suspect]
     Indication: RHEUMATOID ARTHRITIS
     Dosage: INTRAVENOUS
     Route: 042
     Dates: start: 20010417
  2. AMARYL [Concomitant]
  3. METHOTREXATE [Concomitant]
  4. PREDNISONE [Concomitant]
  5. INDERAL [Concomitant]
  6. GEMFIBROZIL [Concomitant]
  7. ALLOPURINOL [Concomitant]
  8. EVISTA [Concomitant]
  9. PREVACID [Concomitant]
  10. FOLATE (FOLATE SODIUM) [Concomitant]
  11. VITAMIN B COMPLEX (B-KOMPLEX ^LECIVA^) [Concomitant]
  12. MAGNESIUM (MAGNESIUM) [Concomitant]

REACTIONS (4)
  - GASTROINTESTINAL TRACT ADENOMA [None]
  - LARGE INTESTINE PERFORATION [None]
  - LEUKOCYTOSIS [None]
  - POST PROCEDURAL PAIN [None]
